FAERS Safety Report 4327793-6 (Version None)
Quarter: 2004Q1

REPORT INFORMATION
  Report Type: 
  Country: None (occurrence: None)
  Receive Date: 20040325
  Receipt Date: 20040309
  Transmission Date: 20041129
  Serious: Yes (Hospitalization)
  Sender: FDA-Public Use
  Company Number: AU-JNJFOC-20040304337

PATIENT
  Sex: Female

DRUGS (5)
  1. TRAMADOL HCL [Suspect]
     Indication: PAIN
     Dosage: 200 MG, IN 1 DAY, ORAL
     Route: 048
     Dates: start: 20020917, end: 20030830
  2. DOTHEP (DOSULEPIN HYDROCHLORIDE) [Suspect]
     Indication: DEPRESSION
     Dosage: 150 MG, ORAL
     Route: 048
     Dates: start: 20021026
  3. TRAMADOL HCL [Suspect]
     Indication: PAIN
  4. LOSEC (OMEPRAZOLE) [Concomitant]
  5. INDERAL [Concomitant]

REACTIONS (6)
  - CONVULSION [None]
  - DEPRESSED LEVEL OF CONSCIOUSNESS [None]
  - DISTURBANCE IN ATTENTION [None]
  - MENSTRUATION IRREGULAR [None]
  - MOOD SWINGS [None]
  - SUICIDAL IDEATION [None]
